FAERS Safety Report 17258655 (Version 1)
Quarter: 2020Q1

REPORT INFORMATION
  Report Type: Spontaneous
  Country: PT (occurrence: PT)
  Receive Date: 20200110
  Receipt Date: 20200110
  Transmission Date: 20200409
  Serious: Yes (Hospitalization, Other)
  Sender: FDA-Public Use
  Company Number: PT-MYLANLABS-2020M1002586

PATIENT
  Age: 63 Year
  Sex: Male

DRUGS (6)
  1. CLONIDINE. [Concomitant]
     Active Substance: CLONIDINE
     Dosage: 0.15 MG, TID
     Route: 065
  2. SIMVASTATIN. [Concomitant]
     Active Substance: SIMVASTATIN
     Dosage: 20 MG, QD
     Route: 065
  3. ATENOLOL. [Concomitant]
     Active Substance: ATENOLOL
     Dosage: 100 MG, QD
     Route: 065
  4. OLMESARTAN MEDOXOMIL. [Suspect]
     Active Substance: OLMESARTAN MEDOXOMIL
     Indication: HYPERTENSION
     Dosage: 20 MG, QD
  5. LERCANIDIPINE [Concomitant]
     Active Substance: LERCANIDIPINE
     Dosage: 20 MG, QD
     Route: 065
  6. HYDROCHLOROTHIAZIDE. [Concomitant]
     Active Substance: HYDROCHLOROTHIAZIDE
     Indication: HYPERTENSION
     Dosage: 12.5 MG, QD

REACTIONS (10)
  - Diarrhoea [Recovered/Resolved]
  - Decreased appetite [Unknown]
  - Autoimmune enteropathy [Recovered/Resolved]
  - Atrophy [Unknown]
  - Hypoalbuminaemia [Recovered/Resolved]
  - Hypokalaemia [Recovered/Resolved]
  - Abdominal pain [Unknown]
  - Sprue-like enteropathy [Recovered/Resolved]
  - Blood pressure decreased [Unknown]
  - Weight decreased [Recovered/Resolved]
